FAERS Safety Report 4672384-0 (Version None)
Quarter: 2005Q2

REPORT INFORMATION
  Report Type: 
  Country: None (occurrence: None)
  Receive Date: 20050524
  Receipt Date: 20050426
  Transmission Date: 20051028
  Serious: Yes (Death, Hospitalization)
  Sender: FDA-Public Use
  Company Number: 200511279JP

PATIENT
  Age: 55 Year
  Sex: Female

DRUGS (4)
  1. TAXOTERE [Suspect]
     Indication: BREAST CANCER
     Route: 041
     Dates: start: 20050204, end: 20050413
  2. FARMORUBICIN [Concomitant]
     Indication: BREAST CANCER
     Route: 041
     Dates: start: 20050204, end: 20050413
  3. DECADRON [Concomitant]
     Indication: PREMEDICATION
     Route: 041
     Dates: start: 20050204, end: 20050413
  4. NASEA [Concomitant]
     Indication: PREMEDICATION
     Route: 041
     Dates: start: 20050204, end: 20050413

REACTIONS (4)
  - CARDIO-RESPIRATORY ARREST [None]
  - HEPATIC FUNCTION ABNORMAL [None]
  - PNEUMONIA PRIMARY ATYPICAL [None]
  - PNEUMOTHORAX [None]
